FAERS Safety Report 7471104-4 (Version None)
Quarter: 2011Q2

REPORT INFORMATION
  Report Type: 
  Country: None (occurrence: None)
  Receive Date: 20110510
  Receipt Date: 20110501
  Transmission Date: 20111010
  Serious: Yes (Hospitalization, Other)
  Sender: FDA-Public Use
  Company Number: US-ABBOTT-10P-163-0681994-00

PATIENT
  Sex: Male
  Weight: 83.99 kg

DRUGS (4)
  1. HUMIRA [Suspect]
     Indication: PSORIASIS
     Route: 058
     Dates: start: 20100421
  2. ASPIRIN [Concomitant]
     Indication: PROPHYLAXIS
  3. COMMERCIAL HUMIRA (ADALIMUMAB) [Concomitant]
     Indication: PRODUCT USED FOR UNKNOWN INDICATION
     Dates: start: 20100317
  4. HUMIRA [Suspect]
     Route: 058
     Dates: end: 20100908

REACTIONS (3)
  - DUODENAL ULCER [None]
  - PERIPHERAL ARTERY ANEURYSM [None]
  - RENAL FAILURE ACUTE [None]
